FAERS Safety Report 6304220-0 (Version None)
Quarter: 2009Q3

REPORT INFORMATION
  Report Type: 
  Country: None (occurrence: None)
  Receive Date: 20090811
  Receipt Date: 20090730
  Transmission Date: 20100115
  Serious: Yes (Hospitalization)
  Sender: FDA-Public Use
  Company Number: DE-RANBAXY-2009RR-25985

PATIENT
  Age: 48 Year
  Sex: Male

DRUGS (5)
  1. PARACETAMOL [Suspect]
     Indication: OTITIS MEDIA
  2. PARACETAMOL [Suspect]
     Indication: SKIN TEST POSITIVE
  3. PARACETAMOL [Suspect]
     Indication: SKIN TEST
  4. AMOXICILLIN [Suspect]
     Indication: SKIN TEST POSITIVE
  5. AMOXICILLIN [Suspect]
     Indication: SKIN TEST

REACTIONS (4)
  - ACUTE GENERALISED EXANTHEMATOUS PUSTULOSIS [None]
  - HEPATOMEGALY [None]
  - LYMPHOCYTE TRANSFORMATION TEST POSITIVE [None]
  - SKIN TEST POSITIVE [None]
